FAERS Safety Report 23835067 (Version 1)
Quarter: 2024Q2

REPORT INFORMATION
  Report Type: Spontaneous
  Country: US (occurrence: US)
  Receive Date: 20240509
  Receipt Date: 20240509
  Transmission Date: 20240715
  Serious: No
  Sender: FDA-Public Use
  Company Number: US-ALEMBIC PHARMACUETICALS LIMITED-2024SCAL000556

PATIENT

DRUGS (2)
  1. DOXEPIN HYDROCHLORIDE [Suspect]
     Active Substance: DOXEPIN HYDROCHLORIDE
     Indication: Insomnia
     Dosage: 100 MILLIGRAM, QD (ONCE AT BEDTIME)
     Route: 065
     Dates: start: 20230405, end: 20231201
  2. SIMVASTATIN [Concomitant]
     Active Substance: SIMVASTATIN
     Indication: Blood cholesterol increased
     Dosage: 40 MILLIGRAM, QD
     Route: 048

REACTIONS (3)
  - Somnolence [Recovered/Resolved]
  - Product dispensing error [Recovered/Resolved]
  - Dizziness [Recovered/Resolved]

NARRATIVE: CASE EVENT DATE: 20230101
